FAERS Safety Report 22794149 (Version 3)
Quarter: 2023Q4

REPORT INFORMATION
  Report Type: Report from Study
  Country: US (occurrence: US)
  Receive Date: 20230807
  Receipt Date: 20231015
  Transmission Date: 20240110
  Serious: Yes (Hospitalization)
  Sender: FDA-Public Use
  Company Number: US-ABBVIE-5356340

PATIENT
  Sex: Male
  Weight: 100 kg

DRUGS (9)
  1. SKYRIZI [Suspect]
     Active Substance: RISANKIZUMAB-RZAA
     Indication: Crohn^s disease
     Dosage: FORM STRENGTH: 360 MILLIGRAM
     Route: 058
     Dates: start: 20230411
  2. AZELASTINE [Concomitant]
     Active Substance: AZELASTINE
     Indication: Upper-airway cough syndrome
  3. SYMBICORT [Concomitant]
     Active Substance: BUDESONIDE\FORMOTEROL FUMARATE DIHYDRATE
     Indication: Asthma
  4. Hydrochlorothiazide sar [Concomitant]
     Indication: Blood pressure measurement
  5. SKYRIZI [Suspect]
     Active Substance: RISANKIZUMAB-RZAA
     Indication: Crohn^s disease
     Dosage: FORM STRENGTH: 600 MILLIGRAM
     Route: 042
     Dates: start: 20230314, end: 20230411
  6. FLUTICASONE [Concomitant]
     Active Substance: FLUTICASONE
     Indication: Upper-airway cough syndrome
  7. LEVOCETIRIZINE [Concomitant]
     Active Substance: LEVOCETIRIZINE
     Indication: Hypersensitivity
  8. CITRULLINE [Concomitant]
     Active Substance: CITRULLINE
     Indication: Anxiety
  9. LOSARTAN [Concomitant]
     Active Substance: LOSARTAN
     Indication: Hypertension

REACTIONS (9)
  - Intestinal obstruction [Recovering/Resolving]
  - Frequent bowel movements [Not Recovered/Not Resolved]
  - Pain [Not Recovered/Not Resolved]
  - Pain [Not Recovered/Not Resolved]
  - Muscle spasms [Recovering/Resolving]
  - Gastrooesophageal reflux disease [Recovering/Resolving]
  - Constipation [Unknown]
  - Therapeutic response shortened [Not Recovered/Not Resolved]
  - Frequent bowel movements [Not Recovered/Not Resolved]

NARRATIVE: CASE EVENT DATE: 20230101
